FAERS Safety Report 8081490-2 (Version None)
Quarter: 2012Q1

REPORT INFORMATION
  Report Type: 
  Country: None (occurrence: None)
  Receive Date: 20120130
  Receipt Date: 20120120
  Transmission Date: 20120608
  Serious: Yes (Other)
  Sender: FDA-Public Use
  Company Number: PHFR2011GB01896

PATIENT
  Sex: Female

DRUGS (3)
  1. CLOZARIL [Suspect]
     Indication: SCHIZOPHRENIA
     Dosage: 200 MG, UNK
     Route: 048
     Dates: start: 20110221, end: 20110311
  2. CITALOPRAM [Concomitant]
     Indication: DEPRESSION
     Dosage: 20 MG, UNK
     Route: 048
  3. CLOZARIL [Suspect]
     Dosage: UNK
     Route: 048
     Dates: start: 20110922, end: 20120120

REACTIONS (6)
  - ATRIAL FIBRILLATION [None]
  - PYREXIA [None]
  - CONFUSIONAL STATE [None]
  - URINARY INCONTINENCE [None]
  - URINARY TRACT INFECTION [None]
  - MALAISE [None]
